FAERS Safety Report 6725478-X (Version None)
Quarter: 2010Q2

REPORT INFORMATION
  Report Type: 
  Country: None (occurrence: None)
  Receive Date: 20100513
  Receipt Date: 20100513
  Transmission Date: 20101027
  Serious: Yes (Life-Threatening)
  Sender: FDA-Public Use
  Company Number: None

PATIENT
  Sex: Male
  Weight: 177 kg

DRUGS (2)
  1. LEVOTHYROXINE SODIUM [Suspect]
     Indication: HYPERTHYROIDISM
     Dosage: 125 TO 200 DAILY 1 200ML
     Dates: start: 20100416
  2. LIOTHYRONINE SODIUM [Suspect]
     Dosage: 50ML DAILY 1
     Dates: start: 20100429

REACTIONS (9)
  - APPETITE DISORDER [None]
  - CHOKING [None]
  - DIARRHOEA [None]
  - DRY MOUTH [None]
  - DYSPEPSIA [None]
  - DYSPHAGIA [None]
  - IMPAIRED WORK ABILITY [None]
  - NASOPHARYNGITIS [None]
  - WEIGHT DECREASED [None]
